FAERS Safety Report 9321728 (Version 1)
Quarter: 2013Q2

REPORT INFORMATION
  Report Type: Spontaneous
  Country: MY (occurrence: None)
  Receive Date: 20130529
  Receipt Date: 20130529
  Transmission Date: 20140414
  Serious: Yes (Death)
  Sender: FDA-Public Use
  Company Number: 2013AP005408

PATIENT
  Age: 81 Year
  Sex: Male

DRUGS (3)
  1. CLOPIDOGREL (CLOPIDOGREL) [Suspect]
     Indication: ANTIPLATELET THERAPY
  2. ASPIRIN (ACETYLSALICYLIC ACID) [Suspect]
     Indication: ANTIPLATELET THERAPY
  3. ASPIRIN (ACETYLSALICYLIC ACID) [Concomitant]

REACTIONS (5)
  - Ageusia [None]
  - Weight decreased [None]
  - Quality of life decreased [None]
  - Decreased appetite [None]
  - Myocardial infarction [None]
